FAERS Safety Report 23347200 (Version 1)
Quarter: 2023Q4

REPORT INFORMATION
  Report Type: Spontaneous
  Country: US (occurrence: US)
  Receive Date: 20231228
  Receipt Date: 20231228
  Transmission Date: 20240109
  Serious: No
  Sender: FDA-Public Use
  Company Number: US-ALKERMES INC.-ALK-2023-004360

PATIENT
  Sex: Male
  Weight: 76.19 kg

DRUGS (1)
  1. VIVITROL [Suspect]
     Active Substance: NALTREXONE
     Indication: Alcohol use disorder
     Dosage: 360 MILLIGRAM, QMO
     Route: 030
     Dates: start: 20231018, end: 20231018

REACTIONS (6)
  - Off label use [Recovered/Resolved]
  - Product administered by wrong person [Recovered/Resolved]
  - Injection site urticaria [Recovered/Resolved]
  - Injection site erythema [Recovering/Resolving]
  - Injection site pain [Unknown]
  - Injection site abscess [Unknown]

NARRATIVE: CASE EVENT DATE: 20230101
